FAERS Safety Report 15639044 (Version 1)
Quarter: 2018Q4

REPORT INFORMATION
  Report Type: Spontaneous
  Country: US (occurrence: US)
  Receive Date: 20181120
  Receipt Date: 20181120
  Transmission Date: 20190205
  Serious: No
  Sender: FDA-Public Use
  Company Number: US-JNJFOC-20180306847

PATIENT
  Sex: Female

DRUGS (10)
  1. MACROGOL [Concomitant]
     Active Substance: POLYETHYLENE GLYCOLS
  2. FISH OIL [Concomitant]
     Active Substance: FISH OIL
     Route: 048
  3. PEPCID [Concomitant]
     Active Substance: FAMOTIDINE
  4. AMBIEN [Concomitant]
     Active Substance: ZOLPIDEM TARTRATE
  5. VITAMIN D3 [Concomitant]
     Active Substance: CHOLECALCIFEROL
  6. DOXYCYCLINE HYCLATE. [Concomitant]
     Active Substance: DOXYCYCLINE HYCLATE
  7. MOTRIN [Concomitant]
     Active Substance: IBUPROFEN
  8. IMBRUVICA [Suspect]
     Active Substance: IBRUTINIB
     Indication: PRODUCT USED FOR UNKNOWN INDICATION
     Route: 048
  9. RESTASIS [Concomitant]
     Active Substance: CYCLOSPORINE
  10. ADVIL [Concomitant]
     Active Substance: IBUPROFEN

REACTIONS (2)
  - Angioedema [Unknown]
  - Conjunctivitis [Unknown]
